FAERS Safety Report 5977136-7 (Version None)
Quarter: 2008Q4

REPORT INFORMATION
  Report Type: 
  Country: None (occurrence: None)
  Receive Date: 20081201
  Receipt Date: 20081201
  Transmission Date: 20090506
  Serious: Yes (Other)
  Sender: FDA-Public Use
  Company Number: None

PATIENT
  Sex: Female

DRUGS (1)
  1. ZICAM [Suspect]
     Dates: start: 20081118, end: 20081118

REACTIONS (5)
  - DYSPNOEA [None]
  - HEADACHE [None]
  - HYPOSMIA [None]
  - NASAL CONGESTION [None]
  - SWELLING FACE [None]
